FAERS Safety Report 19843825 (Version 1)
Quarter: 2021Q3

REPORT INFORMATION
  Report Type: Spontaneous
  Country: US (occurrence: US)
  Receive Date: 20210917
  Receipt Date: 20210917
  Transmission Date: 20211014
  Serious: No
  Sender: FDA-Public Use
  Company Number: US-AMGEN-USASP2021140719

PATIENT
  Sex: Male

DRUGS (3)
  1. CLOBETASOL [Concomitant]
     Active Substance: CLOBETASOL
     Dosage: UNK
  2. OTEZLA [Suspect]
     Active Substance: APREMILAST
     Indication: PRODUCT USED FOR UNKNOWN INDICATION
     Dosage: 30 MILLIGRAM, BID
     Route: 048
  3. BETAMETH [BETAMETHASONE VALERATE] [Concomitant]
     Dosage: UNK(0.1%)

REACTIONS (2)
  - Intentional dose omission [Not Recovered/Not Resolved]
  - Condition aggravated [Not Recovered/Not Resolved]
